FAERS Safety Report 6398037-9 (Version None)
Quarter: 2009Q4

REPORT INFORMATION
  Report Type: 
  Country: None (occurrence: None)
  Receive Date: 20091013
  Receipt Date: 20091001
  Transmission Date: 20100525
  Serious: Yes (Hospitalization)
  Sender: FDA-Public Use
  Company Number: US-JNJFOC-20091000391

PATIENT
  Age: 24 Year
  Sex: Female

DRUGS (1)
  1. PALIPERIDONE [Suspect]
     Indication: DRUG USE FOR UNKNOWN INDICATION
     Route: 048

REACTIONS (8)
  - ATAXIA [None]
  - CHEST PAIN [None]
  - DIZZINESS [None]
  - DYSARTHRIA [None]
  - ELECTROCARDIOGRAM QT PROLONGED [None]
  - OVERDOSE [None]
  - POSTURAL ORTHOSTATIC TACHYCARDIA SYNDROME [None]
  - SOMNOLENCE [None]
